FAERS Safety Report 14077996 (Version 1)
Quarter: 2017Q4

REPORT INFORMATION
  Report Type: Spontaneous
  Country: US (occurrence: US)
  Receive Date: 20171012
  Receipt Date: 20171012
  Transmission Date: 20180321
  Serious: No
  Sender: FDA-Public Use
  Company Number: US-MYLANLABS-2017M1014746

PATIENT
  Sex: Female
  Weight: 79.37 kg

DRUGS (3)
  1. LORAZEPAM. [Suspect]
     Active Substance: LORAZEPAM
     Indication: ANXIETY
     Dosage: 1 MG, TID
  2. LYRICA [Concomitant]
     Active Substance: PREGABALIN
     Indication: FIBROMYALGIA
     Dosage: 100 MG, HS
  3. LYRICA [Concomitant]
     Active Substance: PREGABALIN
     Indication: SCIATIC NERVE INJURY

REACTIONS (1)
  - Drug ineffective [Not Recovered/Not Resolved]
